FAERS Safety Report 6532011-4 (Version None)
Quarter: 2010Q1

REPORT INFORMATION
  Report Type: 
  Country: None (occurrence: None)
  Receive Date: 20100107
  Receipt Date: 20100107
  Transmission Date: 20100710
  Serious: Yes (Hospitalization, Other)
  Sender: FDA-Public Use
  Company Number: None

PATIENT
  Age: 32 Year
  Sex: Male
  Weight: 92.9874 kg

DRUGS (2)
  1. LAMOTRIGINE [Suspect]
     Indication: DISTURBANCE IN ATTENTION
     Dosage: 1 PILL ONCE A DAY OROPHARINGEAL
     Route: 049
     Dates: start: 20091003, end: 20091229
  2. LAMOTRIGINE [Suspect]
     Indication: EUPHORIC MOOD
     Dosage: 1 PILL ONCE A DAY OROPHARINGEAL
     Route: 049
     Dates: start: 20091003, end: 20091229

REACTIONS (6)
  - ARTHRALGIA [None]
  - CRYING [None]
  - MOVEMENT DISORDER [None]
  - MYALGIA [None]
  - PAIN IN EXTREMITY [None]
  - PRESYNCOPE [None]
